FAERS Safety Report 12530509 (Version 1)
Quarter: 2016Q3

REPORT INFORMATION
  Report Type: Spontaneous
  Country: US (occurrence: None)
  Receive Date: 20160705
  Receipt Date: 20160705
  Transmission Date: 20161109
  Serious: Yes (Other)
  Sender: FDA-Public Use
  Company Number: None

PATIENT
  Age: 30 Year
  Sex: Female
  Weight: 111.13 kg

DRUGS (2)
  1. GABAPENTIN. [Suspect]
     Active Substance: GABAPENTIN
     Indication: ANXIETY
     Dates: start: 20160316, end: 20160610
  2. MAGNESIUM SUPPLEMENTS [Concomitant]

REACTIONS (8)
  - Anxiety [None]
  - Pruritus [None]
  - Depression [None]
  - Withdrawal syndrome [None]
  - Crying [None]
  - Dizziness [None]
  - Night sweats [None]
  - Insomnia [None]

NARRATIVE: CASE EVENT DATE: 20160613
